FAERS Safety Report 10219439 (Version 1)
Quarter: 2014Q1

REPORT INFORMATION
  Report Type: Spontaneous
  Country: US (occurrence: None)
  Receive Date: 20140306
  Receipt Date: 20140306
  Transmission Date: 20141002
  Serious: Yes (Other)
  Sender: FDA-Public Use
  Company Number: 163-21880-13100987

PATIENT
  Age: 78 Year
  Sex: Female
  Weight: 73.95 kg

DRUGS (11)
  1. REVLIMID [Suspect]
     Indication: PLASMA CELL MYELOMA
     Dosage: 10 MG, 14 IN 21 D, PO
     Route: 048
     Dates: start: 20130307, end: 20130927
  2. ZOMETA (ZOLEDRONIC ACID) [Concomitant]
  3. LEVOTHYROXINE (LEVOTHYROXINE) [Concomitant]
  4. OMEPRAZOLE (OMEPRAZOLE) [Concomitant]
  5. MULTIVITAMINS (MULTIVITAMINS) (TABLETS) [Concomitant]
  6. CALCIUM WITH VITAMIN D (CALCIUM WITH VITAMIN D) [Concomitant]
  7. VITAMIN C (ASCORBIC ACID) [Concomitant]
  8. ASPIRIN (ACETYLSALICYLIC ACID) [Concomitant]
  9. GABAPENTIN (GABAPENTIN) [Concomitant]
  10. ACYCLOVIR (ACICLOVIR) [Concomitant]
  11. PROCHLORPERAZINE (PROCHLORPERAZINE) [Concomitant]

REACTIONS (1)
  - Rash pruritic [None]
